FAERS Safety Report 17487762 (Version 1)
Quarter: 2020Q1

REPORT INFORMATION
  Report Type: Spontaneous
  Country: US (occurrence: US)
  Receive Date: 20200220
  Receipt Date: 20200220
  Transmission Date: 20200409
  Serious: No
  Sender: FDA-Public Use
  Company Number: None

PATIENT
  Age: 72 Year
  Sex: Male

DRUGS (1)
  1. HUMIRA [Suspect]
     Active Substance: ADALIMUMAB
     Indication: PSORIASIS
     Dosage: ?          OTHER DOSE:40MG/0.8ML;?
     Route: 058
     Dates: start: 20170603

REACTIONS (2)
  - Psoriasis [None]
  - Therapeutic product effect incomplete [None]

NARRATIVE: CASE EVENT DATE: 202001
